FAERS Safety Report 25546995 (Version 1)
Quarter: 2025Q3

REPORT INFORMATION
  Report Type: Spontaneous
  Country: EU (occurrence: EU)
  Receive Date: 20250714
  Receipt Date: 20250714
  Transmission Date: 20251021
  Serious: Yes (Life-Threatening, Other)
  Sender: NOVO NORDISK
  Company Number: EU-NOVOPROD-1473397

PATIENT
  Sex: Male

DRUGS (2)
  1. PROTAPHANE [Suspect]
     Active Substance: INSULIN HUMAN
     Indication: Product used for unknown indication
  2. ACTRAPID [Suspect]
     Active Substance: INSULIN HUMAN
     Indication: Product used for unknown indication

REACTIONS (1)
  - Neoplasm malignant [Unknown]
